FAERS Safety Report 17431987 (Version 2)
Quarter: 2020Q2

REPORT INFORMATION
  Report Type: Report from Study
  Country: JP (occurrence: JP)
  Receive Date: 20200218
  Receipt Date: 20200529
  Transmission Date: 20200713
  Serious: Yes (Death)
  Sender: FDA-Public Use
  Company Number: JP-GILEAD-2020-0450604

PATIENT
  Age: 62 Year
  Sex: Male
  Weight: 48 kg

DRUGS (5)
  1. NEXIUM [Concomitant]
     Active Substance: ESOMEPRAZOLE MAGNESIUM
     Indication: DISEASE COMPLICATION
     Dosage: UNK
     Route: 048
     Dates: start: 20160816
  2. SOFOSBUVIR W/VELPATASVIR [Suspect]
     Active Substance: SOFOSBUVIR\VELPATASVIR
     Indication: HEPATITIS C
     Dosage: 1 DOSAGE FORM, QD
     Route: 048
     Dates: start: 20190723, end: 20191014
  3. SOFOSBUVIR W/VELPATASVIR [Suspect]
     Active Substance: SOFOSBUVIR\VELPATASVIR
     Indication: HEPATIC CIRRHOSIS
  4. BROTIZOLAM DOC [Concomitant]
     Indication: DISEASE COMPLICATION
     Dosage: UNK
     Route: 048
     Dates: start: 20170123
  5. FUROSEMIDE. [Concomitant]
     Active Substance: FUROSEMIDE
     Indication: HEPATIC CIRRHOSIS
     Route: 048
     Dates: start: 20160816, end: 20200107

REACTIONS (1)
  - Peritonitis bacterial [Fatal]

NARRATIVE: CASE EVENT DATE: 20200120
